FAERS Safety Report 4637551-0 (Version None)
Quarter: 2005Q2

REPORT INFORMATION
  Report Type: 
  Country: None (occurrence: None)
  Receive Date: 20050418
  Receipt Date: 20050407
  Transmission Date: 20051028
  Serious: Yes (Death)
  Sender: FDA-Public Use
  Company Number: ES-AMGEN-UK125742

PATIENT
  Age: 87 Year
  Sex: Male

DRUGS (9)
  1. ARANESP [Suspect]
     Indication: ANAEMIA OF MALIGNANT DISEASE
     Route: 058
     Dates: start: 20020618, end: 20020903
  2. IRON [Concomitant]
     Route: 048
     Dates: start: 20020618, end: 20020903
  3. NIFEDIPINE [Concomitant]
     Route: 048
     Dates: end: 20020915
  4. METFORMIN HCL [Concomitant]
     Route: 048
     Dates: end: 20020915
  5. OMEPRAZOLE [Concomitant]
     Route: 048
     Dates: start: 20020904, end: 20020915
  6. ALLOPURINOL [Concomitant]
     Route: 048
     Dates: end: 20020915
  7. LOPERAMIDE HCL [Concomitant]
     Route: 048
     Dates: start: 20020904, end: 20020909
  8. HYOSCINE HBR HYT [Concomitant]
     Route: 048
     Dates: start: 20020904, end: 20020912
  9. GLUTAMIC ACID [Concomitant]
     Route: 048
     Dates: start: 20020904, end: 20020911

REACTIONS (2)
  - AORTIC ANEURYSM RUPTURE [None]
  - BACK PAIN [None]
